FAERS Safety Report 16798917 (Version 1)
Quarter: 2019Q3

REPORT INFORMATION
  Report Type: Spontaneous
  Country: US (occurrence: US)
  Receive Date: 20190912
  Receipt Date: 20190912
  Transmission Date: 20191005
  Serious: Yes (Other)
  Sender: FDA-Public Use
  Company Number: US-BTG-201900154

PATIENT
  Age: 39 Year
  Sex: Male
  Weight: 117 kg

DRUGS (4)
  1. CROFAB [Suspect]
     Active Substance: CROTALIDAE POLYVALENT IMMUNE FAB (OVINE)
     Indication: SNAKE BITE
     Dosage: 2 VIALS @ 0644.??MAINTENANCE DOSE EVERY SIX HOURS.
     Route: 042
     Dates: start: 20190714, end: 20190714
  2. CROFAB [Suspect]
     Active Substance: CROTALIDAE POLYVALENT IMMUNE FAB (OVINE)
     Indication: SNAKE BITE
     Dosage: 6 VIALS AND 6 VIALS MORE (12 TOTAL). INITIAL CONTROL.
     Route: 065
     Dates: start: 20190713, end: 20190713
  3. CROFAB [Suspect]
     Active Substance: CROTALIDAE POLYVALENT IMMUNE FAB (OVINE)
     Indication: SNAKE BITE
     Dosage: 2 VIALS @ 0038.??MAINTENANCE DOSE EVERY SIX HOURS.
     Route: 042
     Dates: start: 20190714, end: 20190714
  4. CROFAB [Suspect]
     Active Substance: CROTALIDAE POLYVALENT IMMUNE FAB (OVINE)
     Indication: SNAKE BITE
     Dosage: 2 VIALS @ 1220.??MAINTENANCE DOSE EVERY SIX HOURS.
     Route: 042
     Dates: start: 20190714, end: 20190714

REACTIONS (3)
  - Fasciotomy [Unknown]
  - Muscle necrosis [Not Recovered/Not Resolved]
  - Thrombocytopenia [Recovered/Resolved]

NARRATIVE: CASE EVENT DATE: 20190714
